FAERS Safety Report 9498316 (Version 2)
Quarter: 2014Q3

REPORT INFORMATION
  Report Type: Report from Study
  Country: US (occurrence: US)
  Receive Date: 20130904
  Receipt Date: 20140725
  Transmission Date: 20150326
  Serious: Yes (Other)
  Sender: FDA-Public Use
  Company Number: US-BAYER-2013-104140

PATIENT
  Age: 57 Year
  Sex: Male

DRUGS (2)
  1. NEXAVAR [Suspect]
     Active Substance: SORAFENIB
     Indication: HEPATIC CANCER
     Dosage: 400 MG, BID
     Route: 048
     Dates: start: 20130528
  2. NEXAVAR [Suspect]
     Active Substance: SORAFENIB
     Indication: HEPATIC CANCER
     Dosage: TOTAL DAILY DOSE: 400 MG, DOSE REGIMEN: 2X200MG
     Route: 048
     Dates: start: 20130913

REACTIONS (1)
  - Axillary mass [Recovering/Resolving]

NARRATIVE: CASE EVENT DATE: 2013
